FAERS Safety Report 15865776 (Version 2)
Quarter: 2019Q1

REPORT INFORMATION
  Report Type: Other
  Country: RO (occurrence: RO)
  Receive Date: 20190125
  Receipt Date: 20190214
  Transmission Date: 20190417
  Serious: Yes (Hospitalization)
  Sender: FDA-Public Use
  Company Number: RO-CELLTRION INC.-2019RO017927

PATIENT

DRUGS (17)
  1. TAMSULOSIN [Concomitant]
     Active Substance: TAMSULOSIN
     Dosage: 1 PILL/DAY
     Route: 065
  2. GEMCITABINE [Concomitant]
     Active Substance: GEMCITABINE\GEMCITABINE HYDROCHLORIDE
     Indication: DIFFUSE LARGE B-CELL LYMPHOMA
     Dosage: 2000 MG, DAILY
     Route: 065
     Dates: start: 20181227
  3. ETOPOSIDE. [Concomitant]
     Active Substance: ETOPOSIDE
     Indication: DIFFUSE LARGE B-CELL LYMPHOMA
     Dosage: 100 MG
     Route: 042
     Dates: start: 20181205
  4. SOLU-MEDROL [Concomitant]
     Active Substance: METHYLPREDNISOLONE SODIUM SUCCINATE
     Dosage: 125 MG
     Route: 065
  5. RITUXIMAB (UNKNOWN) [Suspect]
     Active Substance: RITUXIMAB
     Dosage: 750 UNK
     Route: 065
     Dates: start: 20181018
  6. MESNA. [Concomitant]
     Active Substance: MESNA
     Indication: DIFFUSE LARGE B-CELL LYMPHOMA
     Dosage: UNK
     Route: 065
     Dates: start: 201812
  7. GEMCITABINE [Concomitant]
     Active Substance: GEMCITABINE\GEMCITABINE HYDROCHLORIDE
     Dosage: 2000 MG
     Route: 065
     Dates: start: 20181228
  8. FUROSEMIDE. [Concomitant]
     Active Substance: FUROSEMIDE
     Dosage: UNK
  9. DEXAMETHASONE. [Concomitant]
     Active Substance: DEXAMETHASONE
     Indication: DIFFUSE LARGE B-CELL LYMPHOMA
     Dosage: UNK
     Route: 065
     Dates: start: 20181018
  10. FILGRASTIM [Concomitant]
     Active Substance: FILGRASTIM
     Dosage: UNK
  11. OXALIPLATIN. [Concomitant]
     Active Substance: OXALIPLATIN
     Indication: DIFFUSE LARGE B-CELL LYMPHOMA
     Dosage: 200 MG
     Route: 065
     Dates: start: 20181227
  12. VINCRISTINE [Concomitant]
     Active Substance: VINCRISTINE
     Indication: DIFFUSE LARGE B-CELL LYMPHOMA
     Dosage: UNK
     Route: 065
     Dates: start: 20181018
  13. DOXORUBICIN [Concomitant]
     Active Substance: DOXORUBICIN
     Indication: DIFFUSE LARGE B-CELL LYMPHOMA
     Dosage: UNK
     Route: 065
     Dates: start: 20181018
  14. RITUXIMAB (UNKNOWN) [Suspect]
     Active Substance: RITUXIMAB
     Indication: DIFFUSE LARGE B-CELL LYMPHOMA
     Dosage: 750 MG
     Route: 065
     Dates: start: 20181227
  15. OXALIPLATIN. [Concomitant]
     Active Substance: OXALIPLATIN
     Dosage: 200 MG
     Route: 065
     Dates: start: 20181228
  16. AMIKACIN. [Concomitant]
     Active Substance: AMIKACIN
     Dosage: 1 VIAL AT 12 HOURS FOR 7 DAYS
     Route: 065
  17. CYCLOPHOSPHAMIDE. [Concomitant]
     Active Substance: CYCLOPHOSPHAMIDE
     Indication: DIFFUSE LARGE B-CELL LYMPHOMA
     Dosage: 1500 MG
     Route: 065
     Dates: start: 20181018

REACTIONS (30)
  - Aplasia [Unknown]
  - Decreased appetite [Unknown]
  - Pyrexia [Unknown]
  - Haemoglobin decreased [Unknown]
  - Blood bicarbonate increased [Unknown]
  - White blood cell count decreased [Unknown]
  - Confusional state [Unknown]
  - Haematocrit decreased [Unknown]
  - Decreased appetite [Unknown]
  - Splenic rupture [Recovered/Resolved]
  - Coma [Not Recovered/Not Resolved]
  - Blood lactate dehydrogenase increased [Unknown]
  - Procalcitonin decreased [Unknown]
  - Leukopenia [Unknown]
  - Anaemia [Unknown]
  - Haemorrhage [Recovered/Resolved]
  - Platelet count decreased [Unknown]
  - Inflammation [Unknown]
  - Asthenia [Unknown]
  - Weight decreased [Not Recovered/Not Resolved]
  - Red blood cell count decreased [Unknown]
  - Lymphocyte count increased [Unknown]
  - Acute kidney injury [Recovering/Resolving]
  - Paraesthesia [Unknown]
  - Red cell distribution width increased [Unknown]
  - Monocyte count decreased [Unknown]
  - Tremor [Unknown]
  - Fatigue [Unknown]
  - Neutrophil count decreased [Unknown]
  - Malaise [Unknown]

NARRATIVE: CASE EVENT DATE: 201811
